FAERS Safety Report 6432150-2 (Version None)
Quarter: 2009Q4

REPORT INFORMATION
  Report Type: 
  Country: None (occurrence: None)
  Receive Date: 20091109
  Receipt Date: 20091104
  Transmission Date: 20100525
  Serious: Yes (Hospitalization)
  Sender: FDA-Public Use
  Company Number: US-B.I. PHARMACEUTICALS,INC./RIDGEFIELD-2009-BP-12914BP

PATIENT
  Sex: Male

DRUGS (10)
  1. SPIRIVA [Suspect]
     Indication: CHRONIC OBSTRUCTIVE PULMONARY DISEASE
     Dosage: 18 MCG
     Route: 055
     Dates: start: 20060101
  2. JANUVIA [Concomitant]
     Indication: DIABETES MELLITUS
  3. GLYBURIDE [Concomitant]
     Indication: DIABETES MELLITUS
  4. METFORMIN [Concomitant]
     Indication: DIABETES MELLITUS
  5. ACCUPRIL [Concomitant]
     Indication: HYPERTENSION
     Dosage: 5 MG
  6. ABILIFY [Concomitant]
  7. TRAZODONE HCL [Concomitant]
  8. OXYGEN [Concomitant]
     Dates: start: 20090901
  9. LIPITOR [Concomitant]
     Dates: end: 20091001
  10. CRESTOR [Concomitant]
     Dates: start: 20091001

REACTIONS (1)
  - MYOCARDIAL INFARCTION [None]
